FAERS Safety Report 6917366-0 (Version None)
Quarter: 2010Q3

REPORT INFORMATION
  Report Type: 
  Country: None (occurrence: None)
  Receive Date: 20100810
  Receipt Date: 20100803
  Transmission Date: 20110219
  Serious: Yes (Disabling, Other)
  Sender: FDA-Public Use
  Company Number: US-SANOFI-AVENTIS-2010SA046883

PATIENT
  Age: 79 Year
  Sex: Female

DRUGS (2)
  1. LANTUS [Suspect]
     Dosage: DOSE:15 UNIT(S)
     Route: 058
  2. OPTICLICK [Suspect]

REACTIONS (7)
  - CONTUSION [None]
  - FALL [None]
  - HYPERHIDROSIS [None]
  - HYPOGLYCAEMIA [None]
  - LIMB INJURY [None]
  - SKIN LACERATION [None]
  - WALKING DISABILITY [None]
